FAERS Safety Report 10400867 (Version 1)
Quarter: 2014Q3

REPORT INFORMATION
  Report Type: Spontaneous
  Country: US (occurrence: US)
  Receive Date: 20140821
  Receipt Date: 20140821
  Transmission Date: 20150326
  Serious: No
  Sender: FDA-Public Use
  Company Number: US-ASTRAZENECA-2014SE30163

PATIENT
  Sex: Male

DRUGS (1)
  1. SYMBICORT [Suspect]
     Active Substance: BUDESONIDE\FORMOTEROL FUMARATE DIHYDRATE
     Dosage: UNKNOWN
     Route: 055

REACTIONS (10)
  - Mouth ulceration [Unknown]
  - Adverse event [Unknown]
  - Infection [Unknown]
  - Oral pain [Unknown]
  - Glossitis [Unknown]
  - Feeling abnormal [Unknown]
  - Haemorrhage [Unknown]
  - Drug ineffective [Unknown]
  - Ageusia [Unknown]
  - Oral infection [Unknown]
